FAERS Safety Report 8925133 (Version 1)
Quarter: 2012Q4

REPORT INFORMATION
  Report Type: Spontaneous
  Country: US (occurrence: None)
  Receive Date: 20121126
  Receipt Date: 20121126
  Transmission Date: 20130627
  Serious: Yes (Life-Threatening, Other)
  Sender: FDA-Public Use
  Company Number: None

PATIENT
  Age: 79 Year
  Sex: Female
  Weight: 63.5 kg

DRUGS (1)
  1. BRILINTA [Suspect]
     Indication: CORONARY DISEASE
     Route: 048
     Dates: start: 20121101, end: 20121114

REACTIONS (2)
  - Respiratory disorder [None]
  - Chest discomfort [None]
